FAERS Safety Report 6312492-1 (Version None)
Quarter: 2009Q3

REPORT INFORMATION
  Report Type: 
  Country: None (occurrence: None)
  Receive Date: 20090813
  Receipt Date: 20090729
  Transmission Date: 20100115
  Serious: Yes (Other)
  Sender: FDA-Public Use
  Company Number: 1-19341601

PATIENT
  Age: 91 Year
  Sex: Female

DRUGS (8)
  1. AMIODARONE HCL [Suspect]
     Indication: ATRIAL FIBRILLATION
     Dosage: 200 MG ONCE DAILY, ORAL
     Route: 048
  2. WARFARIN [Concomitant]
  3. FUROSEMIDE [Concomitant]
  4. METOPROLOL [Concomitant]
  5. ASPIRIN [Concomitant]
  6. PRAVASTATIN [Concomitant]
  7. LEVOTHYROXINE SODIUM [Concomitant]
  8. DONEPEZIL HCL [Concomitant]

REACTIONS (6)
  - BRADYCARDIA [None]
  - CONFUSIONAL STATE [None]
  - DIZZINESS [None]
  - LETHARGY [None]
  - NEUROTOXICITY [None]
  - SOMNOLENCE [None]
